FAERS Safety Report 24987085 (Version 1)
Quarter: 2025Q1

REPORT INFORMATION
  Report Type: Spontaneous
  Country: ES (occurrence: ES)
  Receive Date: 20250219
  Receipt Date: 20250219
  Transmission Date: 20250409
  Serious: Yes (Hospitalization)
  Sender: TEVA
  Company Number: None

PATIENT
  Age: 37 Year
  Sex: Female

DRUGS (4)
  1. FLUCONAZOLE [Suspect]
     Active Substance: FLUCONAZOLE
     Indication: Intertrigo
     Dosage: FLUCONAZOLE (2432A)
     Route: 048
     Dates: start: 20231206, end: 20231217
  2. ESCITALOPRAM OXALATE [Concomitant]
     Active Substance: ESCITALOPRAM OXALATE
     Indication: Persistent depressive disorder
     Route: 048
     Dates: start: 20210226
  3. CITALOPRAM CINFA [Concomitant]
     Indication: Major depression
     Dosage: NOC: 56 TABLETS
     Route: 048
     Dates: start: 20230601
  4. ACETAMINOPHEN [Concomitant]
     Active Substance: ACETAMINOPHEN
     Indication: Spinal pain
     Dosage: PARACETAMOL TARBIS FARMA EFG, 40 TABLETS
     Route: 048
     Dates: start: 20220110

REACTIONS (1)
  - Urticaria [Recovered/Resolved]

NARRATIVE: CASE EVENT DATE: 20231217
